FAERS Safety Report 6408165-7 (Version None)
Quarter: 2009Q4

REPORT INFORMATION
  Report Type: 
  Country: None (occurrence: None)
  Receive Date: 20091021
  Receipt Date: 20091013
  Transmission Date: 20100525
  Serious: Yes (Hospitalization, Other)
  Sender: FDA-Public Use
  Company Number: US-AMGEN-QUU369027

PATIENT
  Sex: Female

DRUGS (3)
  1. ENBREL [Suspect]
     Indication: RHEUMATOID ARTHRITIS
     Route: 058
     Dates: start: 20021101
  2. IMURAN [Concomitant]
     Route: 048
     Dates: start: 20090201
  3. PLAQUENIL [Concomitant]
     Route: 048

REACTIONS (8)
  - ASPIRATION [None]
  - CLOSTRIDIAL INFECTION [None]
  - DECUBITUS ULCER [None]
  - DEEP VEIN THROMBOSIS [None]
  - LOSS OF CONSCIOUSNESS [None]
  - ORAL FUNGAL INFECTION [None]
  - RENAL FAILURE [None]
  - UROSEPSIS [None]
